APPROVED DRUG PRODUCT: MIDOZALAM HYDROCHLORIDE
Active Ingredient: MIDAZOLAM HYDROCHLORIDE
Strength: EQ 5MG BASE/ML
Dosage Form/Route: INJECTABLE;INJECTION
Application: A090316 | Product #002 | TE Code: AP
Applicant: ONESOURCE SPECIALTY PTE LTD
Approved: May 4, 2011 | RLD: No | RS: No | Type: RX